FAERS Safety Report 20570740 (Version 1)
Quarter: 2022Q1

REPORT INFORMATION
  Report Type: Spontaneous
  Country: NL (occurrence: NL)
  Receive Date: 20220309
  Receipt Date: 20220309
  Transmission Date: 20220423
  Serious: Yes (Death)
  Sender: FDA-Public Use
  Company Number: None

PATIENT
  Age: 78 Year
  Sex: Male

DRUGS (5)
  1. CITALOPRAM [Suspect]
     Active Substance: CITALOPRAM HYDROBROMIDE
     Indication: Depression
     Dosage: 10 MILLIGRAM DAILY; 1DD1 AT 21:00 IN THE EVENING , THERAPY END DATE : ASKU
     Dates: start: 202202
  2. QUETIAPINE [Suspect]
     Active Substance: QUETIAPINE
     Indication: Anxiety
     Dosage: 300 MILLIGRAM DAILY; 2DD1, MORNING AND EVENING , THERAPY END DATE : ASKU , QUETIAPINE TABLET FO 150M
     Dates: start: 2022
  3. AMLODIPINE [Concomitant]
     Active Substance: AMLODIPINE BESYLATE
     Dosage: 5 MG (MILLIGRAM) , THERAPY START DATE AND END DATE : ASKU
  4. TEMAZEPAM [Concomitant]
     Active Substance: TEMAZEPAM
     Dosage: 20 MG (MILLIGRAM) , THERAPY START DATE AND END DATE : ASKU
  5. VALPROIC ACID [Concomitant]
     Active Substance: VALPROIC ACID
     Dosage: 300 MG (MILLIGRAM) , THERAPY START DATE AND END DATE : ASKU , VALPROINEZUUR TABLET MSR 300MG / BRAN

REACTIONS (2)
  - Suicidal ideation [Fatal]
  - Loss of libido [Not Recovered/Not Resolved]

NARRATIVE: CASE EVENT DATE: 20220201
